FAERS Safety Report 19742517 (Version 2)
Quarter: 2021Q3

REPORT INFORMATION
  Report Type: Spontaneous
  Country: FR (occurrence: FR)
  Receive Date: 20210824
  Receipt Date: 20210903
  Transmission Date: 20211014
  Serious: Yes (Hospitalization, Other)
  Sender: FDA-Public Use
  Company Number: FR-MYLANLABS-2021M1054588

PATIENT
  Age: 39 Year
  Sex: Male
  Weight: 80 kg

DRUGS (5)
  1. PREZISTA [Interacting]
     Active Substance: DARUNAVIR ETHANOLATE
     Indication: HIV INFECTION
     Dosage: 1200 MILLIGRAM, QD
     Route: 048
     Dates: start: 2020
  2. NORVIR [Interacting]
     Active Substance: RITONAVIR
     Indication: HIV INFECTION
     Dosage: 200 MILLIGRAM, QD
     Route: 048
     Dates: start: 2020
  3. FLUCONAZOLE. [Suspect]
     Active Substance: FLUCONAZOLE
     Indication: CRYPTOCOCCOSIS
     Dosage: 200 MILLIGRAM, QD
     Route: 048
     Dates: start: 2020
  4. NOVONORM [Concomitant]
     Active Substance: REPAGLINIDE
     Dosage: UNK
  5. JANUVIA [Concomitant]
     Active Substance: SITAGLIPTIN PHOSPHATE
     Dosage: UNK
     Route: 065

REACTIONS (3)
  - Hepatic cytolysis [Recovering/Resolving]
  - Drug interaction [Recovered/Resolved]
  - Overdose [Recovered/Resolved]

NARRATIVE: CASE EVENT DATE: 202101
